FAERS Safety Report 4528179-1 (Version None)
Quarter: 2004Q4

REPORT INFORMATION
  Report Type: 
  Country: None (occurrence: None)
  Receive Date: 20041130
  Receipt Date: 20041020
  Transmission Date: 20050328
  Serious: No
  Sender: FDA-Public Use
  Company Number: 702346

PATIENT
  Age: 42 Year
  Sex: Male

DRUGS (2)
  1. AMEVIVE [Suspect]
     Indication: PSORIASIS
     Dosage: 15 MG QW IM
     Route: 030
     Dates: start: 20041012
  2. INSULIN PUMP [Concomitant]

REACTIONS (3)
  - BODY TEMPERATURE INCREASED [None]
  - LYMPHOCYTE COUNT INCREASED [None]
  - UPPER RESPIRATORY TRACT INFECTION [None]
